FAERS Safety Report 26190834 (Version 2)
Quarter: 2025Q4

REPORT INFORMATION
  Report Type: Spontaneous
  Country: EU (occurrence: EU)
  Receive Date: 20251223
  Receipt Date: 20251229
  Transmission Date: 20260117
  Serious: No
  Sender: BIOGEN
  Company Number: EU-BIOGEN-2095862

PATIENT
  Sex: Female

DRUGS (1)
  1. TYSABRI [Suspect]
     Active Substance: NATALIZUMAB
     Indication: Product used for unknown indication
     Dosage: 2 TIMES 150 MG

REACTIONS (3)
  - Muscle spasms [Unknown]
  - Pyrexia [Unknown]
  - Rash [Unknown]
